FAERS Safety Report 20533804 (Version 3)
Quarter: 2022Q2

REPORT INFORMATION
  Report Type: Spontaneous
  Country: US (occurrence: US)
  Receive Date: 20220301
  Receipt Date: 20220412
  Transmission Date: 20220721
  Serious: No
  Sender: FDA-Public Use
  Company Number: US-Blueprint Medicines Corporation-SP-US-2022-000532

PATIENT
  Age: 64 Year
  Sex: Male

DRUGS (1)
  1. AYVAKIT [Suspect]
     Active Substance: AVAPRITINIB
     Indication: Gastrointestinal stromal tumour
     Route: 048
     Dates: start: 20220131

REACTIONS (5)
  - Faeces soft [Unknown]
  - Defaecation urgency [Unknown]
  - Periorbital swelling [Unknown]
  - Lacrimation increased [Unknown]
  - Abdominal pain upper [Unknown]
